FAERS Safety Report 8173816-6 (Version None)
Quarter: 2012Q1

REPORT INFORMATION
  Report Type: 
  Country: None (occurrence: None)
  Receive Date: 20120224
  Receipt Date: 20111214
  Transmission Date: 20120608
  Serious: Yes (Hospitalization)
  Sender: FDA-Public Use
  Company Number: BE-024866

PATIENT
  Age: 79 Year
  Sex: Male

DRUGS (3)
  1. CHLORAMBUCIL [Suspect]
     Dosage: TABLET 10 MG/M2
     Route: 048
     Dates: start: 20100310
  2. OFATUMUMAB [Suspect]
     Indication: CHRONIC LYMPHOCYTIC LEUKAEMIA
     Dosage: INJECTION 300 MG AT DAY 1 INTRAVENOUS, 1000MG AT DAY 8, 1000 EVERY 28 DAYS
     Route: 042
     Dates: start: 20100310
  3. ACETAMINOPHEN [Concomitant]

REACTIONS (1)
  - INFECTION [None]
